FAERS Safety Report 6077187-0 (Version None)
Quarter: 2009Q1

REPORT INFORMATION
  Report Type: 
  Country: None (occurrence: None)
  Receive Date: 20090213
  Receipt Date: 20090210
  Transmission Date: 20090719
  Serious: Yes (Other)
  Sender: FDA-Public Use
  Company Number: US-ASTRAZENECA-2009UW03894

PATIENT
  Sex: Female

DRUGS (1)
  1. ARIMIDEX [Suspect]
     Route: 048
     Dates: start: 20081001

REACTIONS (11)
  - ANXIETY [None]
  - BONE PAIN [None]
  - CONSTIPATION [None]
  - FEELING ABNORMAL [None]
  - HAEMORRHOIDAL HAEMORRHAGE [None]
  - HOT FLUSH [None]
  - INFLUENZA LIKE ILLNESS [None]
  - NAUSEA [None]
  - NIGHT SWEATS [None]
  - PNEUMONIA [None]
  - SKIN IRRITATION [None]
